FAERS Safety Report 8378177-5 (Version None)
Quarter: 2012Q2

REPORT INFORMATION
  Report Type: 
  Country: None (occurrence: None)
  Receive Date: 20120522
  Receipt Date: 20120521
  Transmission Date: 20120825
  Serious: No
  Sender: FDA-Public Use
  Company Number: US-PFIZER INC-2012122949

PATIENT
  Sex: Female
  Weight: 91 kg

DRUGS (6)
  1. EFFEXOR XR [Suspect]
     Indication: DEPRESSION
     Dosage: 150 MG, 2X/DAY
     Route: 048
     Dates: start: 20111001, end: 20120101
  2. VENLAFAXINE HCL [Suspect]
     Indication: DEPRESSION
  3. NOVOLOG MIX 70/30 [Concomitant]
     Indication: DIABETES MELLITUS
     Dosage: UNK
  4. EFFEXOR XR [Suspect]
     Indication: NERVOUSNESS
     Dosage: 150 MG, 2X/DAY
     Route: 048
     Dates: end: 20110801
  5. VENLAFAXINE HCL [Suspect]
     Indication: NERVOUSNESS
     Dosage: 150 MG, 2X/DAY
     Route: 048
     Dates: start: 20110801, end: 20111001
  6. LANTUS [Concomitant]
     Indication: DIABETES MELLITUS
     Dosage: UNK

REACTIONS (2)
  - DRUG INEFFECTIVE [None]
  - BLOOD GLUCOSE INCREASED [None]
